FAERS Safety Report 6896705-3 (Version None)
Quarter: 2010Q3

REPORT INFORMATION
  Report Type: 
  Country: None (occurrence: None)
  Receive Date: 20100802
  Receipt Date: 20070227
  Transmission Date: 20110219
  Serious: No
  Sender: FDA-Public Use
  Company Number: US-PFIZER INC-2007001186

PATIENT
  Sex: Female
  Weight: 129.27 kg

DRUGS (2)
  1. LYRICA [Suspect]
     Indication: NEURALGIA
     Dates: start: 20060101, end: 20061230
  2. PRILOSEC [Concomitant]

REACTIONS (13)
  - DISTURBANCE IN ATTENTION [None]
  - DIZZINESS [None]
  - DRUG INEFFECTIVE [None]
  - DRY MOUTH [None]
  - FEELING ABNORMAL [None]
  - HYPERTENSION [None]
  - NEURALGIA [None]
  - PAIN [None]
  - RASH [None]
  - SLEEP DISORDER [None]
  - SOMNOLENCE [None]
  - VISION BLURRED [None]
  - WEIGHT INCREASED [None]
